FAERS Safety Report 17240477 (Version 8)
Quarter: 2022Q2

REPORT INFORMATION
  Report Type: Report from Study
  Country: None (occurrence: US)
  Receive Date: 20200107
  Receipt Date: 20220412
  Transmission Date: 20220721
  Serious: Yes (Other)
  Sender: FDA-Public Use
  Company Number: US-AKCEA THERAPEUTICS-2020IS001005

PATIENT
  Age: 78 Year
  Sex: Female
  Weight: 36.636 kg

DRUGS (5)
  1. TEGSEDI [Suspect]
     Active Substance: INOTERSEN SODIUM
     Indication: Hereditary neuropathic amyloidosis
     Route: 058
     Dates: start: 2019, end: 20200121
  2. DEVICE [Suspect]
     Active Substance: DEVICE
  3. CELLCEPT [Concomitant]
     Active Substance: MYCOPHENOLATE MOFETIL
     Route: 065
  4. PREDNISONE [Concomitant]
     Active Substance: PREDNISONE
     Route: 065
  5. PROGRAF [Concomitant]
     Active Substance: TACROLIMUS
     Route: 065

REACTIONS (14)
  - Glomerulonephritis [Recovering/Resolving]
  - Blood creatine increased [Recovering/Resolving]
  - Urine protein/creatinine ratio increased [Recovering/Resolving]
  - Nephrolithiasis [Unknown]
  - Renal tubular necrosis [Unknown]
  - Chronic kidney disease [Unknown]
  - Glomerular filtration rate decreased [Recovering/Resolving]
  - Urinary tract infection [Recovered/Resolved]
  - Renal disorder [Recovering/Resolving]
  - Superficial vein prominence [Not Recovered/Not Resolved]
  - Proteinuria [Recovered/Resolved]
  - Contusion [Not Recovered/Not Resolved]
  - Thrombocytopenia [Recovered/Resolved]
  - Blood pressure increased [Unknown]

NARRATIVE: CASE EVENT DATE: 20191213
